FAERS Safety Report 20971015 (Version 1)
Quarter: 2022Q2

REPORT INFORMATION
  Report Type: Spontaneous
  Country: US (occurrence: US)
  Receive Date: 20220616
  Receipt Date: 20220616
  Transmission Date: 20220721
  Serious: No
  Sender: FDA-Public Use
  Company Number: US-SA-SAC20220609001384

PATIENT
  Sex: Female

DRUGS (5)
  1. DUPIXENT [Suspect]
     Active Substance: DUPILUMAB
     Indication: Dermatitis atopic
     Dosage: 300 MG, QOW
     Route: 058
     Dates: start: 20211116
  2. ADVIL [Concomitant]
     Active Substance: IBUPROFEN
  3. LORATADINE [Concomitant]
     Active Substance: LORATADINE
  4. EUCRISA [Concomitant]
     Active Substance: CRISABOROLE
  5. TRIAMCINOLONE [Concomitant]
     Active Substance: TRIAMCINOLONE

REACTIONS (3)
  - Eye disorder [Unknown]
  - Dermatitis atopic [Unknown]
  - Therapeutic response decreased [Unknown]
